FAERS Safety Report 15894543 (Version 2)
Quarter: 2019Q1

REPORT INFORMATION
  Report Type: Spontaneous
  Country: US (occurrence: US)
  Receive Date: 20190131
  Receipt Date: 20190205
  Transmission Date: 20190417
  Serious: Yes (Death, Other)
  Sender: FDA-Public Use
  Company Number: US-009507513-1901USA009661

PATIENT

DRUGS (1)
  1. KEYTRUDA [Suspect]
     Active Substance: PEMBROLIZUMAB
     Indication: MALIGNANT NEOPLASM PROGRESSION
     Dosage: 8 CYCLES, FIFTH LINE
     Route: 042
     Dates: start: 20160816

REACTIONS (2)
  - Death [Fatal]
  - Malignant neoplasm progression [Unknown]
